FAERS Safety Report 4733694-1 (Version None)
Quarter: 2005Q3

REPORT INFORMATION
  Report Type: 
  Country: None (occurrence: None)
  Receive Date: 20050721
  Receipt Date: 20050513
  Transmission Date: 20060218
  Serious: No
  Sender: FDA-Public Use
  Company Number: 2005SP000778

PATIENT
  Age: 81 Year
  Sex: Female

DRUGS (8)
  1. LUNESTA [Suspect]
     Indication: INSOMNIA
     Dosage: 3 MG;HS;ORAL
     Route: 048
     Dates: start: 20050505, end: 20050505
  2. OXYGEN [Concomitant]
  3. PREDNISONE [Concomitant]
  4. PRILOSEC [Concomitant]
  5. IMURAN [Concomitant]
  6. BENICAR [Concomitant]
  7. ATIVAN [Concomitant]
  8. PROPAFENONE HYDROCHLORIDE [Concomitant]

REACTIONS (4)
  - FALL [None]
  - LOSS OF CONSCIOUSNESS [None]
  - PERIORBITAL HAEMATOMA [None]
  - RIB FRACTURE [None]
